FAERS Safety Report 14251071 (Version 1)
Quarter: 2017Q4

REPORT INFORMATION
  Report Type: Report from Study
  Country: BR (occurrence: BR)
  Receive Date: 20171205
  Receipt Date: 20171205
  Transmission Date: 20180321
  Serious: Yes (Other)
  Sender: FDA-Public Use
  Company Number: BR-ROCHE-2033469

PATIENT

DRUGS (3)
  1. PEGINTERFERON ALFA-2B [Suspect]
     Active Substance: PEGINTERFERON ALFA-2B
     Indication: CHRONIC HEPATITIS C
     Route: 065
  2. PEG-INTERFERON ALFA 2A [Suspect]
     Active Substance: PEGINTERFERON ALFA-2A
     Indication: CHRONIC HEPATITIS C
     Route: 065
  3. RIBAVIRIN. [Suspect]
     Active Substance: RIBAVIRIN
     Indication: CHRONIC HEPATITIS C
     Route: 065

REACTIONS (13)
  - Rash [Unknown]
  - Hepatic failure [Unknown]
  - Anaemia [Unknown]
  - Pulmonary sepsis [Unknown]
  - Opportunistic infection [Unknown]
  - Cardiac failure [Unknown]
  - Drug intolerance [Unknown]
  - Thyroid disorder [Unknown]
  - Lung abscess [Unknown]
  - Mental disorder [Unknown]
  - Erysipelas [Unknown]
  - Thrombocytopenia [Unknown]
  - Drug dependence [Unknown]
